FAERS Safety Report 9820123 (Version 1)
Quarter: 2013Q4

REPORT INFORMATION
  Report Type: Spontaneous
  Country: GB (occurrence: None)
  Receive Date: 20131017
  Receipt Date: 20131017
  Transmission Date: 20140711
  Serious: Yes (Other)
  Sender: FDA-Public Use
  Company Number: 2013GMK005186

PATIENT
  Age: 93 Year
  Sex: Male

DRUGS (4)
  1. GABAPENTIN (GABAPENTIN) UNKNOWN [Suspect]
     Indication: BURNING SENSATION
  2. LEVOTHYROXINE SODIUM (LEVOTHYROXINE SODIUM) [Concomitant]
  3. LISINOPRIL (LISINOPRIL) [Concomitant]
  4. METHOTREXATE (METHOTREXATE) [Concomitant]

REACTIONS (2)
  - Hallucination [None]
  - Somnolence [None]
